FAERS Safety Report 10658883 (Version 1)
Quarter: 2014Q4

REPORT INFORMATION
  Report Type: Spontaneous
  Country: US (occurrence: US)
  Receive Date: 20141217
  Receipt Date: 20141217
  Transmission Date: 20150529
  Serious: No
  Sender: FDA-Public Use
  Company Number: US-GLAXOSMITHKLINE-A1072829A

PATIENT

DRUGS (2)
  1. NONE [Concomitant]
     Active Substance: UNSPECIFIED INGREDIENT
  2. VOTRIENT [Suspect]
     Active Substance: PAZOPANIB HYDROCHLORIDE
     Route: 062

REACTIONS (3)
  - Paraesthesia [Unknown]
  - Burning sensation [Unknown]
  - Accidental exposure to product [Unknown]

NARRATIVE: CASE EVENT DATE: 20140509
